FAERS Safety Report 23666447 (Version 2)
Quarter: 2024Q2

REPORT INFORMATION
  Report Type: Spontaneous
  Country: FR (occurrence: FR)
  Receive Date: 20240324
  Receipt Date: 20240405
  Transmission Date: 20240716
  Serious: Yes (Death, Other)
  Sender: FDA-Public Use
  Company Number: None

PATIENT
  Age: 64 Year
  Sex: Male

DRUGS (18)
  1. CYCLOPHOSPHAMIDE [Suspect]
     Active Substance: CYCLOPHOSPHAMIDE
     Indication: Lymphoma
  2. PREDNISOLONE [Suspect]
     Active Substance: PREDNISOLONE
     Indication: Lymphoma
  3. RITUXIMAB [Suspect]
     Active Substance: RITUXIMAB
     Indication: Lymphoma
     Dosage: FOUR INFUSIONS OF 375 MG/M2 ONE WEEK APART
     Route: 042
  4. RITUXIMAB [Suspect]
     Active Substance: RITUXIMAB
  5. DOXORUBICIN [Suspect]
     Active Substance: DOXORUBICIN
     Indication: Lymphoma
  6. VINCRISTINE [Suspect]
     Active Substance: VINCRISTINE
     Indication: Lymphoma
  7. FAVIPIRAVIR [Suspect]
     Active Substance: FAVIPIRAVIR
     Indication: Norovirus infection
     Dosage: D14 TO 23
  8. FAVIPIRAVIR [Suspect]
     Active Substance: FAVIPIRAVIR
     Dosage: D24 TO 32
  9. FAVIPIRAVIR [Suspect]
     Active Substance: FAVIPIRAVIR
     Dosage: D1 TO 13
  10. FAVIPIRAVIR [Suspect]
     Active Substance: FAVIPIRAVIR
     Dosage: AT DAY 33
  11. ETOPOSIDE [Suspect]
     Active Substance: ETOPOSIDE
     Indication: Lymphoma
  12. OXALIPLATIN [Suspect]
     Active Substance: OXALIPLATIN
     Indication: Lymphoma
  13. EVEROLIMUS [Suspect]
     Active Substance: EVEROLIMUS
     Indication: Lymphoma
  14. GEMCITABINE [Suspect]
     Active Substance: GEMCITABINE
     Indication: Lymphoma
  15. TACROLIMUS [Suspect]
     Active Substance: TACROLIMUS
     Indication: Lymphoma
  16. NITAZOXANIDE [Suspect]
     Active Substance: NITAZOXANIDE
     Indication: Norovirus infection
  17. IFOSFAMIDE [Suspect]
     Active Substance: IFOSFAMIDE
     Indication: Lymphoma
  18. METRONIDAZOLE [Suspect]
     Active Substance: METRONIDAZOLE
     Indication: Parasitic gastroenteritis

REACTIONS (5)
  - Norovirus infection [Fatal]
  - Treatment failure [Fatal]
  - Sepsis [Unknown]
  - Parasitic gastroenteritis [Recovered/Resolved]
  - Disease progression [Unknown]
